FAERS Safety Report 7142188-8 (Version None)
Quarter: 2010Q4

REPORT INFORMATION
  Report Type: 
  Country: None (occurrence: None)
  Receive Date: 20101112
  Receipt Date: 20101006
  Transmission Date: 20110411
  Serious: No
  Sender: FDA-Public Use
  Company Number: 1000016658

PATIENT
  Age: 51 Year
  Sex: Female

DRUGS (4)
  1. SAVELLA [Suspect]
     Indication: FIBROMYALGIA
     Dosage: 12.5 MG (12.5 MG, 1 IN 1 D), ORAL; 25 MG (12.5 MG, 2 IN 1 D), ORAL; 50 MG (25 MG, 2 IN 1 D), ORAL
     Route: 048
     Dates: start: 20090801, end: 20090801
  2. SAVELLA [Suspect]
     Indication: FIBROMYALGIA
     Dosage: 100 MG (50 MG, 2 IN 1 D), ORAL
     Route: 048
     Dates: start: 20090801, end: 20100915
  3. CYCLOBENZAPRINE HCL [Concomitant]
  4. DICLOFENAC SODIUM [Concomitant]

REACTIONS (6)
  - AMNESIA [None]
  - HEADACHE [None]
  - HYPOACUSIS [None]
  - MIGRAINE [None]
  - NAUSEA [None]
  - VERTIGO [None]
